FAERS Safety Report 15289662 (Version 1)
Quarter: 2018Q3

REPORT INFORMATION
  Report Type: Spontaneous
  Country: US (occurrence: US)
  Receive Date: 20180803
  Receipt Date: 20180803
  Transmission Date: 20181010
  Serious: No
  Sender: FDA-Public Use
  Company Number: None

PATIENT
  Age: 32 Year
  Sex: Female
  Weight: 136.17 kg

DRUGS (11)
  1. CPAP MACHINE [Concomitant]
  2. PRENATAL VITAMINS [Concomitant]
     Active Substance: VITAMINS
  3. TYLENOL EXTRA STRENGTH [Concomitant]
     Active Substance: ACETAMINOPHEN
  4. SYMBICORT [Concomitant]
     Active Substance: BUDESONIDE\FORMOTEROL FUMARATE DIHYDRATE
  5. ASMANEX [Concomitant]
     Active Substance: MOMETASONE FUROATE
  6. FISH OIL [Concomitant]
     Active Substance: FISH OIL
  7. CALCIUM [Concomitant]
     Active Substance: CALCIUM
  8. METHLYLDOPA [Suspect]
     Active Substance: METHYLDOPA
     Indication: HYPERTENSION
     Dosage: ?          QUANTITY:1 TABLET(S);?
     Route: 048
  9. ZYRTEC [Concomitant]
     Active Substance: CETIRIZINE HYDROCHLORIDE
  10. VITAMIN B12 [Concomitant]
     Active Substance: CYANOCOBALAMIN
  11. VITAMIN D [Concomitant]
     Active Substance: CHOLECALCIFEROL

REACTIONS (13)
  - Abdominal pain upper [None]
  - Dizziness [None]
  - Nausea [None]
  - Dysphonia [None]
  - Dyspnoea [None]
  - Photophobia [None]
  - Headache [None]
  - Palpitations [None]
  - Therapy change [None]
  - Nasopharyngitis [None]
  - Laryngitis [None]
  - Nasal congestion [None]
  - Fatigue [None]

NARRATIVE: CASE EVENT DATE: 20180724
